FAERS Safety Report 23988508 (Version 1)
Quarter: 2024Q2

REPORT INFORMATION
  Report Type: Spontaneous
  Country: US (occurrence: US)
  Receive Date: 20240619
  Receipt Date: 20240619
  Transmission Date: 20240715
  Serious: No
  Sender: FDA-Public Use
  Company Number: US-AMGEN-USASP2024120138

PATIENT

DRUGS (1)
  1. RIABNI [Suspect]
     Active Substance: RITUXIMAB-ARRX
     Indication: Product used for unknown indication
     Dosage: UNK (STRENGTH 500 MG/50 ML)
     Route: 065

REACTIONS (2)
  - Product storage error [Unknown]
  - Intercepted product administration error [Unknown]

NARRATIVE: CASE EVENT DATE: 20240601
